FAERS Safety Report 7012127-9 (Version None)
Quarter: 2010Q3

REPORT INFORMATION
  Report Type: 
  Country: None (occurrence: None)
  Receive Date: 20100922
  Receipt Date: 20100922
  Transmission Date: 20110219
  Serious: Yes (Disabling)
  Sender: FDA-Public Use
  Company Number: None

PATIENT
  Sex: Female
  Weight: 64.8644 kg

DRUGS (1)
  1. LOXITANE [Suspect]
     Indication: PSYCHOTIC DISORDER
     Dosage: LOWEST DOSE AT NIGHT (ONE AND OFF FOR 2 YEARS)

REACTIONS (2)
  - BLEPHAROSPASM [None]
  - DYSTONIA [None]
